FAERS Safety Report 11099595 (Version 3)
Quarter: 2015Q3

REPORT INFORMATION
  Report Type: Spontaneous
  Country: US (occurrence: US)
  Receive Date: 20150508
  Receipt Date: 20150904
  Transmission Date: 20151125
  Serious: No
  Sender: FDA-Public Use
  Company Number: US-SHIRE-US201504024

PATIENT
  Age: 17 Year
  Sex: Female

DRUGS (2)
  1. VYVANSE [Suspect]
     Active Substance: LISDEXAMFETAMINE DIMESYLATE
     Indication: ATTENTION DEFICIT/HYPERACTIVITY DISORDER
     Dosage: UNK (40-50 MG), UNKNOWN
     Route: 048
     Dates: start: 201401
  2. VYVANSE [Suspect]
     Active Substance: LISDEXAMFETAMINE DIMESYLATE
     Dosage: UNK (LESS THAN 40 MG), UNKNOWN
     Route: 048
     Dates: start: 2013, end: 2015

REACTIONS (2)
  - Dysphonia [Recovering/Resolving]
  - Educational problem [Recovered/Resolved]

NARRATIVE: CASE EVENT DATE: 2014
